FAERS Safety Report 15196379 (Version 2)
Quarter: 2018Q3

REPORT INFORMATION
  Report Type: Spontaneous
  Country: JP (occurrence: JP)
  Receive Date: 20180725
  Receipt Date: 20180801
  Transmission Date: 20181010
  Serious: Yes (Other)
  Sender: FDA-Public Use
  Company Number: JP-JNJFOC-20180730016

PATIENT
  Age: 88 Year
  Sex: Female

DRUGS (10)
  1. ALDACTONE A [Concomitant]
     Active Substance: SPIRONOLACTONE
     Route: 065
  2. ROZEREM [Concomitant]
     Active Substance: RAMELTEON
     Route: 065
  3. LANSOPRAZOLE. [Concomitant]
     Active Substance: LANSOPRAZOLE
     Route: 065
  4. BIO?THREE [Concomitant]
     Active Substance: HERBALS
     Route: 065
  5. AMITIZA [Concomitant]
     Active Substance: LUBIPROSTONE
     Route: 065
  6. AZOSEMIDE [Concomitant]
     Active Substance: AZOSEMIDE
     Route: 065
  7. CALONAL [Concomitant]
     Active Substance: ACETAMINOPHEN
     Route: 065
  8. LANIRAPID [Concomitant]
     Active Substance: METILDIGOXIN
     Route: 065
  9. XARELTO [Suspect]
     Active Substance: RIVAROXABAN
     Indication: VENOUS THROMBOSIS
     Route: 048
  10. CALFINA AMEL [Concomitant]
     Route: 065

REACTIONS (1)
  - Femur fracture [Unknown]

NARRATIVE: CASE EVENT DATE: 20180720
